FAERS Safety Report 5812915-8 (Version None)
Quarter: 2008Q3

REPORT INFORMATION
  Report Type: 
  Country: None (occurrence: None)
  Receive Date: 20080717
  Receipt Date: 20070709
  Transmission Date: 20090109
  Serious: No
  Sender: FDA-Public Use
  Company Number: A0662090A

PATIENT
  Age: 39 Year
  Sex: Female

DRUGS (1)
  1. NICORETTE (MINT) [Suspect]

REACTIONS (5)
  - GINGIVAL SWELLING [None]
  - HYPERSENSITIVITY [None]
  - LOCAL SWELLING [None]
  - STOMATITIS [None]
  - TOOTHACHE [None]
